FAERS Safety Report 8477697 (Version 2)
Quarter: 2013Q3

REPORT INFORMATION
  Report Type: Spontaneous
  Country: US (occurrence: US)
  Receive Date: 20120327
  Receipt Date: 20130725
  Transmission Date: 20140515
  Serious: No
  Sender: FDA-Public Use
  Company Number: US-GLAXOSMITHKLINE-A0960798A

PATIENT
  Age: 32 Year
  Sex: Female

DRUGS (2)
  1. LAMICTAL XR [Suspect]
     Indication: CONVULSION
     Dosage: 400MG PER DAY
     Route: 048
     Dates: start: 201108
  2. LEVOTHYROXINE [Concomitant]

REACTIONS (1)
  - Exposure during pregnancy [Unknown]
